FAERS Safety Report 10097403 (Version 1)
Quarter: 2014Q2

REPORT INFORMATION
  Report Type: Spontaneous
  Country: JP (occurrence: JP)
  Receive Date: 20140423
  Receipt Date: 20140423
  Transmission Date: 20141212
  Serious: Yes (Death, Other)
  Sender: FDA-Public Use
  Company Number: JP-BAXTER-2014BAX019071

PATIENT
  Sex: Male

DRUGS (1)
  1. DIANEAL-N PD-4 1.5 [Suspect]
     Indication: RENAL FAILURE CHRONIC
     Route: 033
     Dates: start: 20131113, end: 20140414

REACTIONS (5)
  - Cardiac failure [Fatal]
  - Cerebral haemorrhage [Unknown]
  - Cerebral infarction [Unknown]
  - Hemiplegia [Unknown]
  - General physical health deterioration [Unknown]
